FAERS Safety Report 4558798-8 (Version None)
Quarter: 2005Q1

REPORT INFORMATION
  Report Type: 
  Country: None (occurrence: None)
  Receive Date: 20050121
  Receipt Date: 20041229
  Transmission Date: 20050727
  Serious: Yes (Congenital Anomaly)
  Sender: FDA-Public Use
  Company Number: GB-GLAXOSMITHKLINE-B0363835A

PATIENT
  Sex: Male

DRUGS (5)
  1. COMBIVIR [Suspect]
     Indication: VIRAL INFECTION
     Dosage: 600MG PER DAY
     Route: 065
     Dates: start: 20040130, end: 20040601
  2. RETROVIR [Suspect]
     Indication: VIRAL INFECTION
     Dosage: 600MG PER DAY
     Route: 065
     Dates: start: 20040601, end: 20040720
  3. KALETRA [Suspect]
     Indication: VIRAL INFECTION
     Route: 065
     Dates: start: 20040601
  4. VIRACEPT [Suspect]
     Indication: VIRAL INFECTION
     Dosage: 2500MG PER DAY
     Route: 065
     Dates: start: 20040130, end: 20040601
  5. VIREAD [Suspect]
     Indication: VIRAL INFECTION
     Dosage: 300MG PER DAY
     Route: 065
     Dates: start: 20040601, end: 20040720

REACTIONS (4)
  - ABDOMINAL DISTENSION [None]
  - ABDOMINAL HERNIA [None]
  - CARDIAC MURMUR [None]
  - CRYPTORCHISM [None]
